FAERS Safety Report 5426204-7 (Version None)
Quarter: 2007Q3

REPORT INFORMATION
  Report Type: 
  Country: None (occurrence: None)
  Receive Date: 20070827
  Receipt Date: 20070817
  Transmission Date: 20080115
  Serious: Yes (Hospitalization)
  Sender: FDA-Public Use
  Company Number: B0483743A

PATIENT
  Age: 36 Year
  Sex: Female

DRUGS (2)
  1. LAMICTAL [Suspect]
     Indication: EPILEPSY
     Dosage: 250MG PER DAY
     Route: 048
     Dates: start: 20060101
  2. DEPAKENE [Concomitant]
     Indication: EPILEPSY
     Dosage: 500MG PER DAY
     Route: 048
     Dates: start: 20060801

REACTIONS (8)
  - BALANCE DISORDER [None]
  - EYE DISORDER [None]
  - HEADACHE [None]
  - PHONOPHOBIA [None]
  - PHOSPHENES [None]
  - PHOTOPHOBIA [None]
  - VISION BLURRED [None]
  - VISUAL FIELD DEFECT [None]
